FAERS Safety Report 8482844-2 (Version None)
Quarter: 2012Q2

REPORT INFORMATION
  Report Type: 
  Country: None (occurrence: None)
  Receive Date: 20120626
  Receipt Date: 20120615
  Transmission Date: 20120825
  Serious: Yes (Hospitalization)
  Sender: FDA-Public Use
  Company Number: 2012SP019180

PATIENT
  Age: 27 Year
  Sex: Female

DRUGS (2)
  1. IMPLANON [Suspect]
     Indication: CONTRACEPTION
     Dosage: 1 DF
     Dates: start: 20120105, end: 20120210
  2. TROSPIUM CHLORIDE [Suspect]
     Indication: URINARY INCONTINENCE
     Dates: start: 20111101

REACTIONS (10)
  - HEPATIC STEATOSIS [None]
  - STAPHYLOCOCCUS TEST POSITIVE [None]
  - DEVICE DISLOCATION [None]
  - CATHETER SITE INFLAMMATION [None]
  - HEPATITIS CHOLESTATIC [None]
  - PURULENCE [None]
  - ANAEMIA VITAMIN B12 DEFICIENCY [None]
  - HEPATITIS TOXIC [None]
  - HEADACHE [None]
  - MEDICAL DEVICE COMPLICATION [None]
